FAERS Safety Report 10436468 (Version 1)
Quarter: 2014Q3

REPORT INFORMATION
  Report Type: Spontaneous
  Country: US (occurrence: US)
  Receive Date: 20140908
  Receipt Date: 20140908
  Transmission Date: 20150326
  Serious: No
  Sender: FDA-Public Use
  Company Number: US-BRISTOL-MYERS SQUIBB COMPANY-19477124

PATIENT
  Age: 70 Year
  Sex: Female
  Weight: 145.12 kg

DRUGS (12)
  1. TOPAMAX [Concomitant]
     Active Substance: TOPIRAMATE
  2. METOPROLOL [Concomitant]
     Active Substance: METOPROLOL
  3. BIOTENE ORALBALANCE [Concomitant]
  4. VITAMINS [Concomitant]
     Active Substance: VITAMINS
  5. FISH OIL [Concomitant]
     Active Substance: FISH OIL
  6. BENZONATATE. [Concomitant]
     Active Substance: BENZONATATE
     Indication: COUGH
  7. DOXYCYCLINE. [Concomitant]
     Active Substance: DOXYCYCLINE
  8. VENLAFAXINE HCL [Concomitant]
     Active Substance: VENLAFAXINE HYDROCHLORIDE
  9. OXYBUTYNIN CHLORIDE. [Concomitant]
     Active Substance: OXYBUTYNIN CHLORIDE
     Indication: SKIN EXFOLIATION
     Dosage: AT NIGHT
  10. ABILIFY [Suspect]
     Active Substance: ARIPIPRAZOLE
     Dosage: 1DF:HALF TABLET
  11. NIACIN. [Concomitant]
     Active Substance: NIACIN
  12. LIPITOR [Concomitant]
     Active Substance: ATORVASTATIN CALCIUM

REACTIONS (2)
  - Bronchitis [Unknown]
  - Wrong technique in drug usage process [Unknown]
